FAERS Safety Report 8595532-9 (Version None)
Quarter: 2012Q3

REPORT INFORMATION
  Report Type: 
  Country: None (occurrence: None)
  Receive Date: 20120815
  Receipt Date: 20120806
  Transmission Date: 20120928
  Serious: Yes (Hospitalization)
  Sender: FDA-Public Use
  Company Number: FR-ASTRAZENECA-2012SE55659

PATIENT
  Age: 89 Year
  Sex: Female

DRUGS (11)
  1. TRIMEPRAZINE TARTRATE [Suspect]
     Route: 048
     Dates: end: 20120522
  2. LASIX [Concomitant]
     Route: 048
  3. POTASSIUM CHLORIDE [Concomitant]
  4. OMEPRAZOLE [Suspect]
     Route: 048
     Dates: end: 20120522
  5. EFFEXOR XR [Suspect]
     Route: 048
     Dates: end: 20120522
  6. TEMAZEPAM [Suspect]
     Route: 048
     Dates: end: 20120522
  7. ISOSORBIDE DINITRATE [Concomitant]
     Route: 048
  8. VASTAREL [Concomitant]
     Route: 048
  9. INDAPAMIDE [Concomitant]
  10. TRAMADOL HCL [Suspect]
     Indication: PAIN
     Route: 048
     Dates: end: 20120522
  11. NASONEX [Suspect]
     Dates: end: 20120522

REACTIONS (6)
  - ANXIETY [None]
  - INSOMNIA [None]
  - CONFUSIONAL STATE [None]
  - HALLUCINATIONS, MIXED [None]
  - DEPRESSED MOOD [None]
  - DISORIENTATION [None]
